FAERS Safety Report 6161339-5 (Version None)
Quarter: 2009Q2

REPORT INFORMATION
  Report Type: 
  Country: None (occurrence: None)
  Receive Date: 20090417
  Receipt Date: 20090410
  Transmission Date: 20091009
  Serious: Yes (Hospitalization)
  Sender: FDA-Public Use
  Company Number: CHPA2009US08404

PATIENT
  Age: 51 Year
  Sex: Female

DRUGS (4)
  1. NICOTINE [Suspect]
     Indication: SMOKING CESSATION THERAPY
     Dosage: TRANSDERMAL, 21 MG, QD, TRANSDERMAL
     Route: 062
     Dates: start: 20090322, end: 20090401
  2. FIORICET [Concomitant]
  3. CHANTIX [Concomitant]
  4. CALAN [Concomitant]

REACTIONS (3)
  - BLOOD PRESSURE INCREASED [None]
  - CORONARY ARTERY OCCLUSION [None]
  - HEADACHE [None]
